FAERS Safety Report 26076222 (Version 1)
Quarter: 2025Q4

REPORT INFORMATION
  Report Type: Spontaneous
  Country: GB (occurrence: GB)
  Receive Date: 20251121
  Receipt Date: 20251121
  Transmission Date: 20260117
  Serious: Yes (Other)
  Sender: DR REDDYS
  Company Number: None

PATIENT
  Age: 23 Year
  Sex: Male

DRUGS (1)
  1. FINASTERIDE [Suspect]
     Active Substance: FINASTERIDE
     Indication: Alopecia
     Dosage: UNK
     Route: 048

REACTIONS (4)
  - Erectile dysfunction [Unknown]
  - Suicidal ideation [Not Recovered/Not Resolved]
  - Libido decreased [Unknown]
  - Post 5-alpha-reductase inhibitor syndrome [Unknown]
